FAERS Safety Report 7658609-8 (Version None)
Quarter: 2011Q3

REPORT INFORMATION
  Report Type: 
  Country: None (occurrence: None)
  Receive Date: 20110804
  Receipt Date: 20110804
  Transmission Date: 20111222
  Serious: Yes (Other)
  Sender: FDA-Public Use
  Company Number: None

PATIENT
  Age: 66 Year
  Sex: Female
  Weight: 58.9676 kg

DRUGS (1)
  1. ACYCLOVIR [Suspect]
     Indication: RASH
     Dosage: 5X DAY 200 MG.
     Dates: start: 20110716

REACTIONS (2)
  - EPISTAXIS [None]
  - RASH [None]
